FAERS Safety Report 20706697 (Version 2)
Quarter: 2023Q1

REPORT INFORMATION
  Report Type: Spontaneous
  Country: US (occurrence: US)
  Receive Date: 20220413
  Receipt Date: 20230228
  Transmission Date: 20230417
  Serious: No
  Sender: FDA-Public Use
  Company Number: US-SA-2022SA129023

PATIENT
  Sex: Female

DRUGS (1)
  1. AUBAGIO [Suspect]
     Active Substance: TERIFLUNOMIDE
     Indication: Multiple sclerosis
     Dosage: 14 MG, QD
     Route: 048
     Dates: start: 20200917

REACTIONS (9)
  - Fatigue [Unknown]
  - Restless legs syndrome [Unknown]
  - Flushing [Unknown]
  - Asthenia [Unknown]
  - Costochondritis [Unknown]
  - Dyspnoea [Unknown]
  - Dizziness [Unknown]
  - Limb discomfort [Unknown]
  - Nausea [Unknown]
